FAERS Safety Report 8304763 (Version 2)
Quarter: 2013Q2

REPORT INFORMATION
  Report Type: Report from Study
  Country: US (occurrence: US)
  Receive Date: 20111221
  Receipt Date: 20130401
  Transmission Date: 20140414
  Serious: Yes (Death, Other)
  Sender: FDA-Public Use
  Company Number: US-BRISTOL-MYERS SQUIBB COMPANY-15163116

PATIENT
  Age: 63 Year
  Sex: Male

DRUGS (5)
  1. IPILIMUMAB [Suspect]
     Indication: MALIGNANT MELANOMA
     Dosage: NO OF COURSES: 3
     Route: 042
     Dates: start: 20100520, end: 20100722
  2. PRAVASTATIN SODIUM [Concomitant]
  3. BACTRIM DS [Concomitant]
     Dosage: ON MONDAY,WEDNESDAY AND FRIDAY
  4. VALTREX [Concomitant]
  5. DEXAMETHASONE [Concomitant]

REACTIONS (2)
  - Malignant neoplasm progression [Fatal]
  - Central nervous system necrosis [Not Recovered/Not Resolved]
